FAERS Safety Report 17338921 (Version 1)
Quarter: 2020Q1

REPORT INFORMATION
  Report Type: Spontaneous
  Country: FR (occurrence: FR)
  Receive Date: 20200129
  Receipt Date: 20200129
  Transmission Date: 20200409
  Serious: Yes (Other)
  Sender: FDA-Public Use
  Company Number: FR-PFIZER INC-2020033666

PATIENT
  Age: 88 Year
  Sex: Female

DRUGS (2)
  1. PLAQUENIL [Suspect]
     Active Substance: HYDROXYCHLOROQUINE SULFATE
     Dosage: 2 DF, 1X/DAY
     Dates: start: 20191125
  2. METHOTREXATE SODIUM. [Suspect]
     Active Substance: METHOTREXATE SODIUM
     Dosage: 20 MG, 1X/DAY

REACTIONS (6)
  - Vision blurred [Unknown]
  - Hallucination, visual [Unknown]
  - Eye pain [Unknown]
  - Asthenopia [Unknown]
  - Lacrimation increased [Unknown]
  - Visual impairment [Unknown]
